FAERS Safety Report 24683483 (Version 1)
Quarter: 2024Q4

REPORT INFORMATION
  Report Type: Spontaneous
  Country: JP (occurrence: JP)
  Receive Date: 20241201
  Receipt Date: 20241201
  Transmission Date: 20250114
  Serious: Yes (Hospitalization, Other)
  Sender: NOVO NORDISK
  Company Number: JP-NOVOPROD-1298742

PATIENT
  Age: 61 Year
  Sex: Male
  Weight: 57.2 kg

DRUGS (3)
  1. NOVORAPID [Suspect]
     Active Substance: INSULIN ASPART
     Indication: Type 1 diabetes mellitus
     Dosage: 19 IU, QD
     Route: 058
  2. LANTUS [Concomitant]
     Active Substance: INSULIN GLARGINE
     Indication: Type 1 diabetes mellitus
     Dosage: 16 IU, QD
  3. AMLODIPINE [Concomitant]
     Active Substance: AMLODIPINE BESYLATE
     Dosage: 5 MG, QD
     Route: 048

REACTIONS (3)
  - Cerebral atrophy [Unknown]
  - Infection [Unknown]
  - Hypoglycaemic encephalopathy [Unknown]
